FAERS Safety Report 21494581 (Version 1)
Quarter: 2022Q4

REPORT INFORMATION
  Report Type: Other
  Country: US (occurrence: US)
  Receive Date: 20221021
  Receipt Date: 20221021
  Transmission Date: 20230113
  Serious: Yes (Hospitalization)
  Sender: FDA-Public Use
  Company Number: US-MAYNE PHARMA-2022MYN001162

PATIENT
  Age: 67 Year
  Sex: Female

DRUGS (1)
  1. CLOZAPINE [Suspect]
     Active Substance: CLOZAPINE
     Indication: Product used for unknown indication

REACTIONS (5)
  - Fall [Unknown]
  - Fall [Unknown]
  - Treatment noncompliance [Unknown]
  - Psychotic disorder [Unknown]
  - Living in residential institution [Unknown]

NARRATIVE: CASE EVENT DATE: 20200101
